FAERS Safety Report 15540761 (Version 2)
Quarter: 2018Q4

REPORT INFORMATION
  Report Type: Spontaneous
  Country: JP (occurrence: JP)
  Receive Date: 20181023
  Receipt Date: 20181121
  Transmission Date: 20190205
  Serious: Yes (Other)
  Sender: FDA-Public Use
  Company Number: JP-ROCHE-2202590

PATIENT
  Age: 67 Year
  Sex: Male

DRUGS (26)
  1. LUCENTIS [Suspect]
     Active Substance: RANIBIZUMAB
     Route: 031
  2. LUCENTIS [Suspect]
     Active Substance: RANIBIZUMAB
     Route: 031
  3. LUCENTIS [Suspect]
     Active Substance: RANIBIZUMAB
     Route: 031
  4. LUCENTIS [Suspect]
     Active Substance: RANIBIZUMAB
     Route: 031
  5. LUCENTIS [Suspect]
     Active Substance: RANIBIZUMAB
     Route: 031
  6. LUCENTIS [Suspect]
     Active Substance: RANIBIZUMAB
     Route: 031
  7. LUCENTIS [Suspect]
     Active Substance: RANIBIZUMAB
     Route: 031
  8. VISUDYNE [Suspect]
     Active Substance: VERTEPORFIN
     Route: 042
  9. AFLIBERCEPT [Concomitant]
     Active Substance: AFLIBERCEPT
     Route: 065
  10. LUCENTIS [Suspect]
     Active Substance: RANIBIZUMAB
     Indication: POLYPOIDAL CHOROIDAL VASCULOPATHY
     Route: 031
  11. LUCENTIS [Suspect]
     Active Substance: RANIBIZUMAB
     Indication: AGE-RELATED MACULAR DEGENERATION
     Route: 031
  12. LUCENTIS [Suspect]
     Active Substance: RANIBIZUMAB
     Route: 031
  13. LUCENTIS [Suspect]
     Active Substance: RANIBIZUMAB
     Route: 031
  14. LUCENTIS [Suspect]
     Active Substance: RANIBIZUMAB
     Route: 031
  15. LUCENTIS [Suspect]
     Active Substance: RANIBIZUMAB
     Route: 031
  16. LUCENTIS [Suspect]
     Active Substance: RANIBIZUMAB
     Route: 031
  17. LUCENTIS [Suspect]
     Active Substance: RANIBIZUMAB
     Route: 031
  18. VISUDYNE [Suspect]
     Active Substance: VERTEPORFIN
     Indication: POLYPOIDAL CHOROIDAL VASCULOPATHY
     Route: 042
  19. LUCENTIS [Suspect]
     Active Substance: RANIBIZUMAB
     Route: 031
  20. LUCENTIS [Suspect]
     Active Substance: RANIBIZUMAB
     Route: 031
  21. LUCENTIS [Suspect]
     Active Substance: RANIBIZUMAB
     Dosage: UNK
     Route: 031
  22. LUCENTIS [Suspect]
     Active Substance: RANIBIZUMAB
     Route: 031
  23. LUCENTIS [Suspect]
     Active Substance: RANIBIZUMAB
     Route: 031
  24. LUCENTIS [Suspect]
     Active Substance: RANIBIZUMAB
     Route: 031
  25. LUCENTIS [Suspect]
     Active Substance: RANIBIZUMAB
     Route: 031
  26. AFLIBERCEPT [Concomitant]
     Active Substance: AFLIBERCEPT
     Indication: POLYPOIDAL CHOROIDAL VASCULOPATHY
     Route: 065

REACTIONS (3)
  - Visual acuity reduced [Unknown]
  - Chorioretinal disorder [Unknown]
  - Retinal depigmentation [Unknown]
